FAERS Safety Report 18940380 (Version 2)
Quarter: 2021Q3

REPORT INFORMATION
  Report Type: Spontaneous
  Country: US (occurrence: US)
  Receive Date: 20210225
  Receipt Date: 20210825
  Transmission Date: 20211014
  Serious: Yes (Hospitalization, Other)
  Sender: FDA-Public Use
  Company Number: US-SA-2021SA064473

PATIENT
  Age: 66 Year
  Sex: Female

DRUGS (2)
  1. DUPIXENT [Suspect]
     Active Substance: DUPILUMAB
     Dosage: 300 MG, QOW
     Route: 058
     Dates: end: 2021
  2. DUPIXENT [Suspect]
     Active Substance: DUPILUMAB
     Indication: ECZEMA NUMMULAR
     Dosage: 600 MG, 1X
     Route: 058
     Dates: start: 202011, end: 202011

REACTIONS (6)
  - Sepsis [Unknown]
  - Cardiac failure congestive [Unknown]
  - Pneumonia [Unknown]
  - Anaemia [Unknown]
  - Ulcer haemorrhage [Unknown]
  - Pharyngitis streptococcal [Unknown]
